FAERS Safety Report 12559559 (Version 1)
Quarter: 2016Q3

REPORT INFORMATION
  Report Type: Spontaneous
  Country: TR (occurrence: TR)
  Receive Date: 20160715
  Receipt Date: 20160715
  Transmission Date: 20161109
  Serious: Yes (Life-Threatening, Hospitalization, Other)
  Sender: FDA-Public Use
  Company Number: TR-MACLEODS PHARMACEUTICALS US LTD-MAC2016002896

PATIENT

DRUGS (1)
  1. OLANZAPINE. [Suspect]
     Active Substance: OLANZAPINE
     Indication: ACCIDENTAL EXPOSURE TO PRODUCT BY CHILD
     Dosage: UNK
     Route: 065

REACTIONS (12)
  - Coma scale abnormal [Recovered/Resolved]
  - Hypotension [Recovered/Resolved]
  - Hypomagnesaemia [Recovered/Resolved]
  - Leukopenia [Recovered/Resolved]
  - Respiratory rate decreased [Recovered/Resolved]
  - Unresponsive to stimuli [Recovered/Resolved]
  - Miosis [Recovered/Resolved]
  - Tonic convulsion [Recovered/Resolved]
  - Toxicity to various agents [Recovered/Resolved]
  - Hypocalcaemia [Recovered/Resolved]
  - Depressed level of consciousness [Recovered/Resolved]
  - Hypertonia [Recovered/Resolved]
